FAERS Safety Report 11857732 (Version 1)
Quarter: 2015Q4

REPORT INFORMATION
  Report Type: Spontaneous
  Country: US (occurrence: None)
  Receive Date: 20151221
  Receipt Date: 20151221
  Transmission Date: 20160305
  Serious: Yes (Disabling)
  Sender: FDA-Public Use
  Company Number: None

PATIENT
  Age: 7 Year
  Sex: Male

DRUGS (1)
  1. POLYETHYLENE GLYCOL 3350 NF 17 G [Suspect]
     Active Substance: POLYETHYLENE GLYCOL 3350
     Indication: CONSTIPATION
     Route: 048
     Dates: start: 20150924, end: 20151212

REACTIONS (5)
  - Screaming [None]
  - Autism [None]
  - Quality of life decreased [None]
  - Disturbance in attention [None]
  - Educational problem [None]

NARRATIVE: CASE EVENT DATE: 20150924
